FAERS Safety Report 9119314 (Version 3)
Quarter: 2014Q2

REPORT INFORMATION
  Report Type: Spontaneous
  Country: US (occurrence: US)
  Receive Date: 20130207
  Receipt Date: 20140530
  Transmission Date: 20141212
  Serious: Yes (Other)
  Sender: FDA-Public Use
  Company Number: US-009507513-1302USA001738

PATIENT
  Sex: Male

DRUGS (1)
  1. PROPECIA [Suspect]
     Indication: ALOPECIA
     Dosage: 1 MG, UNK
     Route: 048
     Dates: start: 199901, end: 200002

REACTIONS (12)
  - Hypersensitivity [Unknown]
  - Immune system disorder [Unknown]
  - Somatoform disorder [Not Recovered/Not Resolved]
  - Erectile dysfunction [Not Recovered/Not Resolved]
  - Adrenal disorder [Unknown]
  - Libido decreased [Unknown]
  - Semen volume decreased [Unknown]
  - Blood testosterone decreased [Unknown]
  - Skin irritation [Unknown]
  - Skin disorder [Unknown]
  - Acupuncture [Unknown]
  - Stress [Unknown]
